FAERS Safety Report 5812215-6 (Version None)
Quarter: 2008Q3

REPORT INFORMATION
  Report Type: 
  Country: None (occurrence: None)
  Receive Date: 20080714
  Receipt Date: 20080707
  Transmission Date: 20090109
  Serious: Yes (Death, Disabling, Other)
  Sender: FDA-Public Use
  Company Number: 2007SP002821

PATIENT
  Age: 67 Year
  Sex: Male
  Weight: 60 kg

DRUGS (7)
  1. TEMODAL [Suspect]
     Indication: ANAPLASTIC ASTROCYTOMA
     Dosage: 260 MG/M2; QD;PO, 200 MG/M2; QD; PO
     Route: 048
     Dates: start: 20061021, end: 20061025
  2. TEMODAL [Suspect]
     Indication: ANAPLASTIC ASTROCYTOMA
     Dosage: 260 MG/M2; QD;PO, 200 MG/M2; QD; PO
     Route: 048
     Dates: start: 20060923
  3. FAMOTIDINE [Concomitant]
  4. PREDNISOLONE [Concomitant]
  5. VOLTRAEN [Concomitant]
  6. OXYCONTIN [Concomitant]
  7. OPSO [Concomitant]

REACTIONS (4)
  - GENERAL PHYSICAL HEALTH DETERIORATION [None]
  - LYMPHOCYTE COUNT DECREASED [None]
  - NEOPLASM PROGRESSION [None]
  - PNEUMONIA ASPIRATION [None]
